FAERS Safety Report 8810670 (Version 1)
Quarter: 2012Q4

REPORT INFORMATION
  Report Type: 
  Country: US (occurrence: US)
  Receive Date: 20120927
  Receipt Date: 20120927
  Transmission Date: 20130627
  Serious: Yes (Other)
  Sender: FDA-Public Use
  Company Number: US-AMGEN-USASP2012060368

PATIENT
  Sex: Female

DRUGS (4)
  1. NEULASTA [Suspect]
     Indication: CHEMOTHERAPY
     Dosage: UNK
     Dates: start: 201206
  2. NEULASTA [Suspect]
  3. CISPLATIN [Concomitant]
     Indication: NEOPLASM MALIGNANT
  4. DOXEL                              /00639302/ [Concomitant]
     Indication: NEOPLASM MALIGNANT

REACTIONS (9)
  - Hallucination [Recovered/Resolved]
  - Nausea [Recovered/Resolved]
  - Vomiting [Recovered/Resolved]
  - Arthralgia [Recovered/Resolved]
  - Pain in extremity [Recovered/Resolved]
  - Asthenia [Recovered/Resolved]
  - Muscle spasms [Recovered/Resolved]
  - Therapeutic response decreased [Unknown]
  - Spleen disorder [Recovered/Resolved]
